FAERS Safety Report 15154285 (Version 1)
Quarter: 2018Q3

REPORT INFORMATION
  Report Type: Spontaneous
  Country: US (occurrence: US)
  Receive Date: 20180620
  Receipt Date: 20180620
  Transmission Date: 20181010
  Serious: Yes (Hospitalization)
  Sender: FDA-Public Use
  Company Number: None

PATIENT
  Age: 62 Year
  Sex: Female

DRUGS (13)
  1. BUMEX [Concomitant]
     Active Substance: BUMETANIDE
  2. MYCOPHENOLIC [Suspect]
     Active Substance: MYCOPHENOLIC ACID
     Indication: RENAL TRANSPLANT
     Route: 048
     Dates: start: 20161025
  3. CALCIUM [Concomitant]
     Active Substance: CALCIUM
  4. ATORVASTATIN [Concomitant]
     Active Substance: ATORVASTATIN
  5. TACROLIMUS. [Suspect]
     Active Substance: TACROLIMUS
     Indication: RENAL TRANSPLANT
     Dosage: ?          OTHER FREQUENCY:2 CAP EVERY 12HRS;?
     Route: 048
     Dates: start: 20170224
  6. MULTIVITAMIN [Concomitant]
     Active Substance: VITAMINS
  7. CLOPIDOGREL [Concomitant]
     Active Substance: CLOPIDOGREL BISULFATE
  8. VITAMIN B12 [Concomitant]
     Active Substance: CYANOCOBALAMIN
  9. ALLOPURINOL. [Concomitant]
     Active Substance: ALLOPURINOL
  10. CALCITROL [Concomitant]
     Active Substance: CALCITRIOL
  11. FERROUS SULF [Concomitant]
     Active Substance: FERROUS SULFATE
  12. MIRTAZAPINE. [Concomitant]
     Active Substance: MIRTAZAPINE
  13. POTASSIMIN [Concomitant]

REACTIONS (1)
  - Laboratory test abnormal [None]

NARRATIVE: CASE EVENT DATE: 20180615
